FAERS Safety Report 4621290-6 (Version None)
Quarter: 2005Q1

REPORT INFORMATION
  Report Type: 
  Country: None (occurrence: None)
  Receive Date: 20050329
  Receipt Date: 20050322
  Transmission Date: 20050727
  Serious: Yes (Hospitalization)
  Sender: FDA-Public Use
  Company Number: AU-BOEHRINGER INGELHEIM PHARMACEUTICALS, INC.-2005-BP-04711AU

PATIENT
  Sex: Male

DRUGS (5)
  1. MOBIC [Suspect]
     Indication: PAIN
     Route: 048
     Dates: start: 20041010, end: 20041017
  2. HYDRENE [Concomitant]
     Route: 048
  3. CITALOPRAM HYDROBROMIDE [Concomitant]
     Route: 048
  4. ASPIRIN [Concomitant]
     Route: 048
  5. AMLODIPINE [Concomitant]
     Route: 048

REACTIONS (2)
  - ISCHAEMIC LIMB PAIN [None]
  - RASH [None]
